FAERS Safety Report 24647038 (Version 1)
Quarter: 2024Q4

REPORT INFORMATION
  Report Type: Spontaneous
  Country: FR (occurrence: FR)
  Receive Date: 20241121
  Receipt Date: 20241121
  Transmission Date: 20250114
  Serious: Yes (Life-Threatening)
  Sender: MYLAN
  Company Number: None

PATIENT
  Age: 34 Year
  Sex: Female
  Weight: 97 kg

DRUGS (4)
  1. TRANEXAMIC ACID [Suspect]
     Active Substance: TRANEXAMIC ACID
     Indication: Product used for unknown indication
     Dosage: 1 GRAM, TOTAL
     Route: 042
     Dates: start: 20240928, end: 20240928
  2. NOREPINEPHRINE [Suspect]
     Active Substance: NOREPINEPHRINE\NOREPINEPHRINE BITARTRATE
     Indication: Hypotension
     Dosage: 10 MICROGRAM, TOTAL
     Route: 042
     Dates: start: 20240928, end: 20240928
  3. PHENYLEPHRINE [Suspect]
     Active Substance: PHENYLEPHRINE
     Indication: Hypotension
     Dosage: 1 DOSAGE FORM, TOTAL
     Route: 042
     Dates: start: 20240928, end: 20240928
  4. PRILOCAINE HYDROCHLORIDE [Suspect]
     Active Substance: PRILOCAINE HYDROCHLORIDE
     Indication: Spinal anaesthesia
     Dosage: 80 MILLIGRAM, TOTAL
     Route: 037
     Dates: start: 20240928, end: 20240928

REACTIONS (2)
  - Tonic clonic movements [Recovered/Resolved]
  - Maternal exposure during pregnancy [Unknown]

NARRATIVE: CASE EVENT DATE: 20240928
